FAERS Safety Report 5267261-0 (Version None)
Quarter: 2007Q1

REPORT INFORMATION
  Report Type: 
  Country: None (occurrence: None)
  Receive Date: 20070316
  Receipt Date: 20070315
  Transmission Date: 20070707
  Serious: Yes (Death)
  Sender: FDA-Public Use
  Company Number: US-GLAXOSMITHKLINE-A0641783A

PATIENT
  Age: 77 Year
  Sex: Female
  Weight: 54 kg

DRUGS (1)
  1. ROSIGLITAZONE [Suspect]
     Indication: IN-STENT ARTERIAL RESTENOSIS
     Dosage: 4MG PER DAY

REACTIONS (1)
  - MYOCARDIAL INFARCTION [None]
